FAERS Safety Report 5996068-1 (Version None)
Quarter: 2008Q4

REPORT INFORMATION
  Report Type: 
  Country: None (occurrence: None)
  Receive Date: 20081212
  Receipt Date: 20081009
  Transmission Date: 20090506
  Serious: No
  Sender: FDA-Public Use
  Company Number: US-ABBOTT-08P-163-0480653-00

PATIENT
  Sex: Female
  Weight: 120.31 kg

DRUGS (7)
  1. HUMIRA [Suspect]
     Indication: RHEUMATOID ARTHRITIS
     Route: 058
     Dates: start: 20061001
  2. METHOTREXATE [Concomitant]
     Indication: RHEUMATOID ARTHRITIS
     Dosage: 10 PILLS A WEEK
     Route: 048
     Dates: start: 20040101
  3. NAPROXEN [Concomitant]
     Indication: ARTHRALGIA
     Route: 048
     Dates: start: 20040101
  4. TRAZODONE HCL [Concomitant]
     Indication: INSOMNIA
     Route: 048
     Dates: start: 20040101
  5. LISINOPRIL [Concomitant]
     Indication: BLOOD PRESSURE
     Route: 048
     Dates: start: 20070101
  6. ALBUTEROL SULFATE [Concomitant]
     Indication: ASTHMA
  7. VICODIN [Concomitant]
     Indication: ARTHRALGIA
     Dosage: 5/500, 2 TABS AS NEEDED
     Route: 048

REACTIONS (2)
  - RASH PAPULAR [None]
  - RASH PRURITIC [None]
